FAERS Safety Report 4394305-0 (Version None)
Quarter: 2004Q3

REPORT INFORMATION
  Report Type: 
  Country: None (occurrence: None)
  Receive Date: 20040706
  Receipt Date: 20040621
  Transmission Date: 20050211
  Serious: Yes (Hospitalization)
  Sender: FDA-Public Use
  Company Number: 04P-163-0264468-00

PATIENT
  Age: 29 Year
  Sex: Male

DRUGS (4)
  1. DIVALPROEX SODIUM [Suspect]
     Dosage: 250 MG, APPROXIMATELY 74 TABLETS, PER ORAL
     Route: 048
  2. ZIPRASIDONE [Suspect]
     Dosage: 80  MG, APPROXIMATELY 74 TABLETS, PER ORAL
     Route: 048
  3. BUPROPION HCL [Suspect]
     Dosage: 100 MG, APPROXIMATELY 157 TABLETS, PER ORAL
     Route: 048
  4. FLUOXETINE [Suspect]
     Dosage: 40 MG, APPROXIMATELY 180 TABLETS, PER ORAL
     Route: 048

REACTIONS (10)
  - BUNDLE BRANCH BLOCK LEFT [None]
  - DISORIENTATION [None]
  - ELECTROCARDIOGRAM QT CORRECTED INTERVAL PROLONGED [None]
  - ELECTROCARDIOGRAM T WAVE ABNORMAL [None]
  - GRAND MAL CONVULSION [None]
  - HALLUCINATION, VISUAL [None]
  - LETHARGY [None]
  - MULTIPLE DRUG OVERDOSE [None]
  - SINUS TACHYCARDIA [None]
  - SUPRAVENTRICULAR TACHYCARDIA [None]
